FAERS Safety Report 7385397-5 (Version None)
Quarter: 2011Q1

REPORT INFORMATION
  Report Type: 
  Country: None (occurrence: None)
  Receive Date: 20110330
  Receipt Date: 20110322
  Transmission Date: 20110831
  Serious: Yes (Death)
  Sender: FDA-Public Use
  Company Number: US-BAXTER-2011BH007375

PATIENT
  Age: 78 Year
  Sex: Male

DRUGS (4)
  1. HEPARIN SODIUM 1,000 UNITS AND SODIUM CHLORIDE 0.9% [Suspect]
     Indication: THROMBOSIS PROPHYLAXIS
     Route: 065
  2. PLACEBO [Suspect]
     Indication: THROMBOSIS PROPHYLAXIS
     Route: 048
     Dates: start: 20090619, end: 20101206
  3. APIXABAN [Suspect]
     Indication: THROMBOSIS PROPHYLAXIS
     Route: 048
     Dates: start: 20090619, end: 20101206
  4. WARFARIN SODIUM [Suspect]
     Indication: THROMBOSIS PROPHYLAXIS
     Route: 048
     Dates: start: 20090619, end: 20101206

REACTIONS (3)
  - HEPARIN-INDUCED THROMBOCYTOPENIA [None]
  - RESPIRATORY FAILURE [None]
  - POST PROCEDURAL COMPLICATION [None]
